FAERS Safety Report 6317114-1 (Version None)
Quarter: 2009Q3

REPORT INFORMATION
  Report Type: 
  Country: None (occurrence: None)
  Receive Date: 20090819
  Receipt Date: 20090812
  Transmission Date: 20100115
  Serious: Yes (Hospitalization)
  Sender: FDA-Public Use
  Company Number: AX255-09-0375

PATIENT
  Age: 62 Year
  Weight: 64.86 kg

DRUGS (11)
  1. ABRAXANE [Suspect]
     Indication: NON-SMALL CELL LUNG CANCER
     Dosage: 495 MG, INTRAVENOUS
     Route: 042
     Dates: start: 20090730
  2. CARBOPLATIN [Suspect]
     Indication: NON-SMALL CELL LUNG CANCER
     Dosage: 546 MG, INTRAVENOUS
     Route: 042
     Dates: start: 20090730
  3. METOCLOPRAMIDE [Concomitant]
  4. NEURONTIN [Concomitant]
  5. AMBIEN [Concomitant]
  6. ESCITALOPRAM [Concomitant]
  7. RANITIDINE [Concomitant]
  8. MULTIVITAMIN [Concomitant]
  9. VITAMIN B COMPLEX (B-KOMPLEX ^LECIVA^) [Concomitant]
  10. DEXAMETHASONE TAB [Concomitant]
  11. PERCOCET [Concomitant]

REACTIONS (32)
  - ALANINE AMINOTRANSFERASE INCREASED [None]
  - ASPARTATE AMINOTRANSFERASE INCREASED [None]
  - ASTHENIA [None]
  - BACTERIA URINE IDENTIFIED [None]
  - BACTERIAL INFECTION [None]
  - BLOOD ALBUMIN DECREASED [None]
  - BLOOD CALCIUM DECREASED [None]
  - BLOOD GLUCOSE INCREASED [None]
  - BLOOD POTASSIUM DECREASED [None]
  - CEREBRAL HAEMORRHAGE [None]
  - CULTURE URINE POSITIVE [None]
  - DELIRIUM [None]
  - DISORIENTATION [None]
  - DYSPNOEA [None]
  - FAECAL INCONTINENCE [None]
  - FEBRILE NEUTROPENIA [None]
  - GRAND MAL CONVULSION [None]
  - HAEMOGLOBIN DECREASED [None]
  - HEART RATE INCREASED [None]
  - HYDROCEPHALUS [None]
  - HYPOXIA [None]
  - LETHARGY [None]
  - METASTASES TO CENTRAL NERVOUS SYSTEM [None]
  - PARAESTHESIA [None]
  - PLEURAL EFFUSION [None]
  - POSTICTAL STATE [None]
  - PROTEIN TOTAL DECREASED [None]
  - REFUSAL OF TREATMENT BY PATIENT [None]
  - UNRESPONSIVE TO STIMULI [None]
  - URINE LEUKOCYTE ESTERASE POSITIVE [None]
  - WHITE BLOOD CELL COUNT DECREASED [None]
  - WHITE BLOOD CELLS URINE POSITIVE [None]
